FAERS Safety Report 20243779 (Version 4)
Quarter: 2023Q1

REPORT INFORMATION
  Report Type: Spontaneous
  Country: US (occurrence: US)
  Receive Date: 20211228
  Receipt Date: 20230131
  Transmission Date: 20230418
  Serious: No
  Sender: FDA-Public Use
  Company Number: US-AMGEN-USASP2021205765

PATIENT
  Age: 36 Year
  Sex: Female

DRUGS (2)
  1. OTEZLA [Suspect]
     Active Substance: APREMILAST
     Indication: Psoriasis
     Dosage: 30 MILLIGRAM, BID
     Route: 048
     Dates: start: 20210731
  2. SKYRIZI [Suspect]
     Active Substance: RISANKIZUMAB-RZAA
     Indication: Psoriasis
     Dosage: UNK, 50 MILLIGRAM PER MILLILITRE (INJECT I PEN UNDER THE SKIN (SUBCUTANEOUS INJECTION) EVERY 12 WEEK
     Route: 058
     Dates: start: 20211012

REACTIONS (1)
  - Psoriasis [Not Recovered/Not Resolved]
